FAERS Safety Report 6715036-5 (Version None)
Quarter: 2010Q2

REPORT INFORMATION
  Report Type: 
  Country: None (occurrence: None)
  Receive Date: 20100506
  Receipt Date: 20100506
  Transmission Date: 20101027
  Serious: Yes (Life-Threatening, Hospitalization)
  Sender: FDA-Public Use
  Company Number: None

PATIENT
  Sex: Female
  Weight: 88.4514 kg

DRUGS (2)
  1. ZOLOFT [Suspect]
     Indication: MAJOR DEPRESSION
     Dosage: 200 MG INCREASED 225 MG QD ORAL DECREASED 25 MG (ABRUPTLY) WITHIN 48 HRS ~5 D.C. QD ORAL
     Route: 048
     Dates: start: 20100205
  2. ZOLOFT [Suspect]
     Indication: MAJOR DEPRESSION
     Dosage: 200 MG INCREASED 225 MG QD ORAL DECREASED 25 MG (ABRUPTLY) WITHIN 48 HRS ~5 D.C. QD ORAL
     Route: 048
     Dates: start: 20100207

REACTIONS (6)
  - AMNESIA [None]
  - ANXIETY [None]
  - DELIRIUM [None]
  - HALLUCINATION [None]
  - INCORRECT DOSE ADMINISTERED [None]
  - MEDICATION ERROR [None]
